FAERS Safety Report 10271639 (Version 2)
Quarter: 2014Q3

REPORT INFORMATION
  Report Type: Report from Study
  Country: GB (occurrence: GB)
  Receive Date: 20140701
  Receipt Date: 20140701
  Transmission Date: 20150326
  Serious: Yes (Death, Other)
  Sender: FDA-Public Use
  Company Number: GB-ABBVIE-14P-167-1213948-00

PATIENT
  Age: 51 Year
  Sex: Female
  Weight: 136 kg

DRUGS (1)
  1. HUMIRA [Suspect]
     Active Substance: ADALIMUMAB
     Indication: RHEUMATOID ARTHRITIS
     Route: 058
     Dates: start: 20070717, end: 20080515

REACTIONS (9)
  - Diabetes mellitus [Fatal]
  - Cervix carcinoma [Fatal]
  - Renal failure chronic [Fatal]
  - Enteritis infectious [Fatal]
  - Hypertension [Fatal]
  - Cervix carcinoma [Unknown]
  - Myocardial ischaemia [Fatal]
  - Obesity [Fatal]
  - Septic shock [Fatal]

NARRATIVE: CASE EVENT DATE: 20120425
